FAERS Safety Report 13992311 (Version 1)
Quarter: 2017Q3

REPORT INFORMATION
  Report Type: Spontaneous
  Country: US (occurrence: US)
  Receive Date: 20170920
  Receipt Date: 20170920
  Transmission Date: 20171128
  Serious: No
  Sender: FDA-Public Use
  Company Number: US-JNJFOC-20170611536

PATIENT
  Sex: Male

DRUGS (3)
  1. HALDOL DECANOATE [Suspect]
     Active Substance: HALOPERIDOL DECANOATE
     Indication: PRODUCT USED FOR UNKNOWN INDICATION
     Dosage: GIVEN IN LEFT GLUTEAL
     Route: 030
     Dates: start: 20170418
  2. HALDOL DECANOATE [Suspect]
     Active Substance: HALOPERIDOL DECANOATE
     Indication: PRODUCT USED FOR UNKNOWN INDICATION
     Dosage: GIVEN IN RIGHT GLUTEAL
     Route: 030
     Dates: start: 20170223
  3. HALDOL DECANOATE [Suspect]
     Active Substance: HALOPERIDOL DECANOATE
     Indication: PRODUCT USED FOR UNKNOWN INDICATION
     Dosage: GIVEN IN RIGHT DELTOID
     Route: 030
     Dates: start: 20170509

REACTIONS (1)
  - Malaise [Unknown]
